FAERS Safety Report 23859632 (Version 1)
Quarter: 2024Q2

REPORT INFORMATION
  Report Type: Report from Study
  Country: CR (occurrence: None)
  Receive Date: 20240515
  Receipt Date: 20240515
  Transmission Date: 20240716
  Serious: Yes (Other)
  Sender: FDA-Public Use
  Company Number: 2024A105282

PATIENT
  Sex: Male
  Weight: 76 kg

DRUGS (2)
  1. CALQUENCE [Suspect]
     Active Substance: ACALABRUTINIB
     Indication: Chronic lymphocytic leukaemia
     Route: 048
     Dates: start: 202106
  2. GABAPENTIN [Concomitant]
     Active Substance: GABAPENTIN

REACTIONS (4)
  - Peripheral sensorimotor neuropathy [Unknown]
  - Neuropathy peripheral [Not Recovered/Not Resolved]
  - Nerve compression [Unknown]
  - Pain in extremity [Not Recovered/Not Resolved]
